FAERS Safety Report 15698732 (Version 1)
Quarter: 2018Q4

REPORT INFORMATION
  Report Type: Report from Study
  Country: RU (occurrence: RU)
  Receive Date: 20181207
  Receipt Date: 20181207
  Transmission Date: 20190205
  Serious: Yes (Hospitalization)
  Sender: FDA-Public Use
  Company Number: RU-ASTRAZENECA-2018SF60192

PATIENT
  Age: 50 Year
  Sex: Male

DRUGS (5)
  1. BETALOC ZOK [Suspect]
     Active Substance: METOPROLOL SUCCINATE
     Indication: ANGINA UNSTABLE
     Route: 048
     Dates: start: 201808
  2. NOLIPREL [Concomitant]
  3. BRILINTA [Suspect]
     Active Substance: TICAGRELOR
     Indication: ANGINA UNSTABLE
     Route: 048
     Dates: start: 201808
  4. ROSUVASTATIN. [Concomitant]
     Active Substance: ROSUVASTATIN
  5. THROMBO ASS [Concomitant]
     Active Substance: ASPIRIN

REACTIONS (3)
  - Dyspnoea [Recovered/Resolved]
  - Chest pain [Recovering/Resolving]
  - Vascular stent occlusion [Unknown]

NARRATIVE: CASE EVENT DATE: 201809
